FAERS Safety Report 7293917-4 (Version None)
Quarter: 2011Q1

REPORT INFORMATION
  Report Type: 
  Country: None (occurrence: None)
  Receive Date: 20110215
  Receipt Date: 20110208
  Transmission Date: 20110831
  Serious: No
  Sender: FDA-Public Use
  Company Number: US-JNJFOC-20110202910

PATIENT
  Age: 29 Year
  Sex: Male
  Weight: 122.02 kg

DRUGS (3)
  1. SEROQUEL [Concomitant]
     Route: 048
  2. SEROQUEL [Concomitant]
     Route: 048
  3. INVEGA [Suspect]
     Indication: SCHIZOAFFECTIVE DISORDER
     Route: 048

REACTIONS (3)
  - DRUG EFFECT DECREASED [None]
  - ABNORMAL BEHAVIOUR [None]
  - THERAPY CESSATION [None]
